FAERS Safety Report 9348249 (Version 2)
Quarter: 2013Q3

REPORT INFORMATION
  Report Type: Spontaneous
  Country: US (occurrence: US)
  Receive Date: 20130614
  Receipt Date: 20130724
  Transmission Date: 20140515
  Serious: Yes (Other)
  Sender: FDA-Public Use
  Company Number: US-ASTRAZENECA-2013SE41120

PATIENT
  Age: 50 Year
  Sex: Female

DRUGS (7)
  1. PROPRANOLOL [Suspect]
     Route: 065
     Dates: end: 20130529
  2. CRESTOR [Suspect]
     Route: 048
  3. REBIF [Suspect]
     Indication: MULTIPLE SCLEROSIS
     Route: 058
     Dates: start: 20120730, end: 20120930
  4. PLAVIX [Concomitant]
  5. ASPIRIN [Concomitant]
  6. FISH OIL [Concomitant]
  7. FUROSEMIDE [Concomitant]

REACTIONS (3)
  - Myocardial infarction [Recovering/Resolving]
  - Multiple sclerosis [Unknown]
  - Depression [Unknown]
